FAERS Safety Report 4870612-X (Version None)
Quarter: 2005Q4

REPORT INFORMATION
  Report Type: 
  Country: None (occurrence: None)
  Receive Date: 20051228
  Receipt Date: 20051215
  Transmission Date: 20060501
  Serious: Yes (Other)
  Sender: FDA-Public Use
  Company Number: 2005167503

PATIENT
  Age: 48 Year
  Sex: Male
  Weight: 58 kg

DRUGS (6)
  1. VFEND [Suspect]
     Indication: PNEUMONIA ASPERGILLUS
     Dosage: SEE IMAGE
     Route: 048
     Dates: start: 20051014, end: 20051108
  2. VFEND [Suspect]
     Indication: PNEUMONIA ASPERGILLUS
     Dosage: SEE IMAGE
     Route: 048
     Dates: start: 20051101
  3. VFEND [Suspect]
     Indication: PNEUMONIA ASPERGILLUS
     Dosage: 400 MG (2 IN 1 D), INTRAVENOUS
     Route: 042
     Dates: start: 20051109, end: 20051116
  4. VFEND [Suspect]
     Indication: PNEUMONIA ASPERGILLUS
     Dosage: 300 MG, ORAL
     Route: 048
     Dates: start: 20051117
  5. PIPERACILLIN SODIUM [Concomitant]
  6. DIPRIVAN [Concomitant]

REACTIONS (1)
  - NEUROPATHY PERIPHERAL [None]
